FAERS Safety Report 4659911-4 (Version None)
Quarter: 2005Q2

REPORT INFORMATION
  Report Type: 
  Country: None (occurrence: None)
  Receive Date: 20050512
  Receipt Date: 20050330
  Transmission Date: 20051028
  Serious: Yes (Hospitalization, Other)
  Sender: FDA-Public Use
  Company Number: PHEH2005US03744

PATIENT
  Age: 48 Year
  Sex: Female

DRUGS (7)
  1. LAMISIL [Suspect]
     Indication: NAIL TINEA
     Dosage: 250 MG, QD
     Route: 048
     Dates: start: 20031111, end: 20031210
  2. INDERAL LA [Concomitant]
     Dosage: 100 MG, QD
     Route: 048
  3. ELAVIL [Concomitant]
     Dosage: 50 MG, QHS
     Route: 048
  4. WELLBUTRIN SR [Concomitant]
     Dosage: 30 MG, QD
     Route: 048
  5. PREMARIN [Concomitant]
     Dosage: 0.63 MG, QD
     Route: 048
  6. SYNTHROID [Concomitant]
     Dosage: 0.13 MG, QD
     Route: 048
  7. IMITREX [Concomitant]

REACTIONS (35)
  - ABDOMINAL PAIN UPPER [None]
  - ALANINE AMINOTRANSFERASE INCREASED [None]
  - ASPARTATE AMINOTRANSFERASE INCREASED [None]
  - BACTERIAL INFECTION [None]
  - BLOOD ALBUMIN DECREASED [None]
  - BLOOD ALKALINE PHOSPHATASE INCREASED [None]
  - BLOOD BILIRUBIN INCREASED [None]
  - BLOOD IMMUNOGLOBULIN G INCREASED [None]
  - BLOOD POTASSIUM DECREASED [None]
  - CHILLS [None]
  - CHROMATURIA [None]
  - COUGH [None]
  - DECREASED APPETITE [None]
  - DYSPNOEA [None]
  - FAECES PALE [None]
  - GRANULOMATOUS LIVER DISEASE [None]
  - HEADACHE [None]
  - HEPATIC ENZYME INCREASED [None]
  - HERPES SIMPLEX [None]
  - HYPERHIDROSIS [None]
  - HYPOKALAEMIA [None]
  - IMMUNE SYSTEM DISORDER [None]
  - IMMUNODEFICIENCY [None]
  - INFLUENZA LIKE ILLNESS [None]
  - LIVER FUNCTION TEST ABNORMAL [None]
  - LOBAR PNEUMONIA [None]
  - MYALGIA [None]
  - NAUSEA [None]
  - ORAL INTAKE REDUCED [None]
  - PHARYNGOLARYNGEAL PAIN [None]
  - PLEURITIC PAIN [None]
  - PYREXIA [None]
  - TOXOPLASMA SEROLOGY [None]
  - VISUAL DISTURBANCE [None]
  - VOMITING [None]
